FAERS Safety Report 10150463 (Version 1)
Quarter: 2014Q2

REPORT INFORMATION
  Report Type: Spontaneous
  Country: FR (occurrence: FR)
  Receive Date: 20140502
  Receipt Date: 20140502
  Transmission Date: 20141212
  Serious: Yes (Hospitalization)
  Sender: FDA-Public Use
  Company Number: FR-B.I. PHARMACEUTICALS,INC./RIDGEFIELD-2014-BI-19139FF

PATIENT
  Age: 77 Year
  Sex: Female
  Weight: 67 kg

DRUGS (5)
  1. PRADAXA [Suspect]
     Indication: PRODUCT USED FOR UNKNOWN INDICATION
     Dosage: 300 MG
     Route: 048
  2. TENORMINE (ATENOLOL) [Concomitant]
     Dosage: 50 MG
     Route: 065
  3. TAHOR (ATORVASTATINE) [Concomitant]
     Dosage: 80 MG
     Route: 065
  4. EUPANTOL (PANTOPRAZOLE) [Concomitant]
     Dosage: 40 MG
     Route: 065
  5. DOMPERIDONE [Concomitant]
     Dosage: 10 MG
     Route: 065

REACTIONS (1)
  - Cerebrovascular accident [Unknown]
